FAERS Safety Report 5760885-3 (Version None)
Quarter: 2008Q2

REPORT INFORMATION
  Report Type: 
  Country: None (occurrence: None)
  Receive Date: 20080606
  Receipt Date: 20070618
  Transmission Date: 20081010
  Serious: No
  Sender: FDA-Public Use
  Company Number: US-ASTRAZENECA-2007UW14621

PATIENT
  Age: 58 Year
  Sex: Male
  Weight: 93 kg

DRUGS (6)
  1. PRILOSEC [Suspect]
     Indication: BARRETT'S OESOPHAGUS
     Route: 048
  2. VYTORIN [Concomitant]
  3. VITAMINS [Concomitant]
  4. CALCIUM [Concomitant]
  5. TESTUM TOPICAL CREAM [Concomitant]
  6. RESTASIS [Concomitant]
     Route: 047

REACTIONS (6)
  - COUGH [None]
  - DRY EYE [None]
  - DRY MOUTH [None]
  - DYSGEUSIA [None]
  - PARANASAL SINUS HYPERSECRETION [None]
  - SWOLLEN TONGUE [None]
